FAERS Safety Report 4846301-4 (Version None)
Quarter: 2005Q4

REPORT INFORMATION
  Report Type: 
  Country: None (occurrence: None)
  Receive Date: 20051206
  Receipt Date: 20051125
  Transmission Date: 20060501
  Serious: Yes (Life-Threatening)
  Sender: FDA-Public Use
  Company Number: CH-ROCHE-426330

PATIENT
  Age: 49 Year
  Sex: Male
  Weight: 57 kg

DRUGS (6)
  1. PEGASYS [Suspect]
     Route: 065
     Dates: start: 20040115, end: 20041112
  2. RIBAVIRIN [Concomitant]
     Indication: HEPATITIS C
     Dates: start: 20040115, end: 20041115
  3. PROGRAF [Concomitant]
     Indication: LIVER TRANSPLANT
     Route: 048
     Dates: start: 20020415
  4. INDERAL [Concomitant]
     Route: 048
  5. PREDNISONE [Concomitant]
     Indication: LIVER TRANSPLANT
     Route: 048
     Dates: start: 20020415
  6. CITALOPRAM HYDROBROMIDE [Concomitant]
     Route: 048
     Dates: start: 20041115

REACTIONS (4)
  - ANEURYSM [None]
  - CEREBRAL HAEMORRHAGE [None]
  - HEMIPLEGIA [None]
  - PLATELET COUNT DECREASED [None]
